FAERS Safety Report 20964502 (Version 1)
Quarter: 2022Q2

REPORT INFORMATION
  Report Type: Spontaneous
  Country: US (occurrence: US)
  Receive Date: 20220615
  Receipt Date: 20220615
  Transmission Date: 20220721
  Serious: Yes (Hospitalization, Disabling, Other)
  Sender: FDA-Public Use
  Company Number: US-FreseniusKabi-FK202208074

PATIENT
  Age: 39 Year
  Sex: Female

DRUGS (1)
  1. HEPARIN SODIUM [Suspect]
     Active Substance: HEPARIN SODIUM
     Indication: Anticoagulant therapy
     Dosage: DOSE UNKNOWN, GIVEN Q 4-6 HOURS FOR (6 OR 7 DOSES)
     Route: 058
     Dates: start: 202107, end: 202107

REACTIONS (6)
  - Peripheral swelling [Not Recovered/Not Resolved]
  - Contusion [Recovered/Resolved]
  - Hypoaesthesia [Not Recovered/Not Resolved]
  - Joint swelling [Not Recovered/Not Resolved]
  - Pain in extremity [Not Recovered/Not Resolved]
  - Off label use [Unknown]

NARRATIVE: CASE EVENT DATE: 20210701
